FAERS Safety Report 20934021 (Version 1)
Quarter: 2022Q2

REPORT INFORMATION
  Report Type: Spontaneous
  Country: US (occurrence: None)
  Receive Date: 20220607
  Receipt Date: 20220607
  Transmission Date: 20220720
  Serious: Yes (Hospitalization)
  Sender: FDA-Public Use
  Company Number: None

PATIENT
  Sex: Male

DRUGS (18)
  1. TACROLIMUS [Suspect]
     Active Substance: TACROLIMUS
     Indication: Product used for unknown indication
     Dosage: 0.5 MG ?TAKE 1 CAPSULE (0.5 MG TOTAL) BY MOUTH EVERY MORNING AND 2 CAPSULES (1 MG TOTAL) ONCE DAILY
     Route: 048
     Dates: start: 20210821
  2. AMLODIPINE TAB [Concomitant]
  3. CYCLOBENZAPR TAB [Concomitant]
  4. DEPO-MEDROL INJ [Concomitant]
  5. GABAPENTIN [Concomitant]
     Active Substance: GABAPENTIN
  6. GLIPIZIDE TAB [Concomitant]
  7. ISOSORB MONO TAB [Concomitant]
  8. LABETALOL [Concomitant]
     Active Substance: LABETALOL\LABETALOL HYDROCHLORIDE
  9. LANSOPRAZOLE [Concomitant]
     Active Substance: LANSOPRAZOLE
  10. LANTUS SOLOS INJ [Concomitant]
  11. MYCOPHENOLAT TAB [Concomitant]
  12. MYCOPHENOLATE MOFETIL [Concomitant]
     Active Substance: MYCOPHENOLATE MOFETIL
  13. PARICALCITOL [Concomitant]
     Active Substance: PARICALCITOL
  14. PEG-3350/KCL SOL/SODIUM [Concomitant]
  15. PREDNISONE [Concomitant]
     Active Substance: PREDNISONE
  16. ROSUVASTATIN [Concomitant]
     Active Substance: ROSUVASTATIN
  17. TACROLIMUS [Concomitant]
     Active Substance: TACROLIMUS
  18. VITAMIN D CAP [Concomitant]

REACTIONS (1)
  - Hospitalisation [None]
